FAERS Safety Report 4357378-7 (Version None)
Quarter: 2004Q2

REPORT INFORMATION
  Report Type: 
  Country: None (occurrence: None)
  Receive Date: 20040507
  Receipt Date: 20030722
  Transmission Date: 20050107
  Serious: Yes (Hospitalization)
  Sender: FDA-Public Use
  Company Number: 2003-BP-02158BP

PATIENT
  Age: 69 Year
  Sex: Female

DRUGS (17)
  1. MICARDIS [Suspect]
     Indication: CEREBROVASCULAR ACCIDENT
     Dosage: PO
     Route: 048
     Dates: start: 20030311, end: 20030321
  2. MICARDIS [Suspect]
     Indication: MYOCARDIAL INFARCTION
     Dosage: PO
     Route: 048
     Dates: start: 20030311, end: 20030321
  3. MICARDIS [Suspect]
     Indication: PROPHYLAXIS
     Dosage: PO
     Route: 048
     Dates: start: 20030311, end: 20030321
  4. RAMIPRIL [Suspect]
     Indication: CEREBROVASCULAR ACCIDENT
     Dosage: PO
     Route: 048
     Dates: start: 20030311, end: 20030321
  5. RAMIPRIL [Suspect]
     Indication: MYOCARDIAL INFARCTION
     Dosage: PO
     Route: 048
     Dates: start: 20030311, end: 20030321
  6. RAMIPRIL [Suspect]
     Indication: PROPHYLAXIS
     Dosage: PO
     Route: 048
     Dates: start: 20030311, end: 20030321
  7. ASPIRIN [Concomitant]
  8. MAGNESIUM OXIDE (MAGNESIUM OXIDE) (NR) [Concomitant]
  9. CARVEDILOL [Concomitant]
  10. BISACODYL (BISACODYL) (NR) [Concomitant]
  11. GLIMEPIRIDE (GLIMEPIRIDE) (NR) [Concomitant]
  12. METFORMIN (METFORMIN) (NR) [Concomitant]
  13. NICARDIPINE (NICARDIPINE HYDROCHLORIDE) (NR) [Concomitant]
  14. METHOCARBAMOL (METHOCARBAMOL) (NR) [Concomitant]
  15. ATORVASTATIN (ATORVASTATIN) (NR) [Concomitant]
  16. PROGLITAZONE (NR) [Concomitant]
  17. PROSULTIAMINE (PROSULTIAMINE) (NR) [Concomitant]

REACTIONS (7)
  - CONTUSION [None]
  - DIZZINESS [None]
  - FALL [None]
  - HAEMORRHAGE [None]
  - HEAD INJURY [None]
  - ORTHOSTATIC HYPOTENSION [None]
  - SYNCOPE [None]
